FAERS Safety Report 8399130-1 (Version None)
Quarter: 2012Q2

REPORT INFORMATION
  Report Type: 
  Country: None (occurrence: None)
  Receive Date: 20120323
  Receipt Date: 20110106
  Transmission Date: 20120825
  Serious: Yes (Other)
  Sender: FDA-Public Use
  Company Number: 163-21880-11010702

PATIENT
  Age: 55 Year
  Sex: Female

DRUGS (22)
  1. NITROFURANTOIN-MACRO (NITROFURANTOIN) [Concomitant]
  2. VICTOZA (LIRAGLUTID) (INJECTION) [Concomitant]
  3. NOVOLOG [Concomitant]
  4. GLIPIZIDE [Concomitant]
  5. REVLIMID [Suspect]
     Indication: MULTIPLE MYELOMA
     Dosage: 25 MG, PO, 10 MG, QD X 14 DAYS, PO
     Route: 048
     Dates: start: 20110101
  6. REVLIMID [Suspect]
     Indication: MULTIPLE MYELOMA
     Dosage: 25 MG, PO, 10 MG, QD X 14 DAYS, PO
     Route: 048
     Dates: start: 20101201, end: 20101201
  7. LIPITOR [Concomitant]
  8. CAPTOPRIL (CAPTOPRIL) (TABLETS) [Concomitant]
  9. METHOCARBAMOL (METHOCARBAMOL) (TABLETS) [Concomitant]
  10. AVANDIA [Concomitant]
  11. METFORMIN (METFORMIN) (TABLETS) [Concomitant]
  12. VELCADE [Suspect]
     Indication: MULTIPLE MYELOMA
     Dosage: UNK
  13. LORAZEPAM [Concomitant]
  14. CYANOCOBALAMIN [Concomitant]
  15. DEXAMETHASONE [Concomitant]
  16. BACTRIM [Concomitant]
  17. PREVACID (LANSOPRAZOLE) (TABLETS) [Concomitant]
  18. VICODIN [Concomitant]
  19. CIPROFLOXACIN (CIPROFLOXACIN) (TABLETS) [Concomitant]
  20. CEPHALEXIN (CEFALEXIN) (CAPSULES) [Concomitant]
  21. PROCHLORPERAZINE (PROCHLORPERAZINE) (TABLETS) [Concomitant]
  22. HYDROCHLOROTHIAZIDE [Concomitant]

REACTIONS (2)
  - FATIGUE [None]
  - RED BLOOD CELL COUNT DECREASED [None]
